FAERS Safety Report 15421068 (Version 1)
Quarter: 2018Q3

REPORT INFORMATION
  Report Type: Spontaneous
  Country: US (occurrence: US)
  Receive Date: 20180924
  Receipt Date: 20180924
  Transmission Date: 20181010
  Serious: No
  Sender: FDA-Public Use
  Company Number: US-009507513-1809USA010531

PATIENT
  Sex: Female

DRUGS (1)
  1. STEGLATRO [Suspect]
     Active Substance: ERTUGLIFLOZIN PIDOLATE
     Indication: TYPE 2 DIABETES MELLITUS
     Dosage: UNK
     Route: 048
     Dates: start: 201808, end: 2018

REACTIONS (3)
  - Oral fungal infection [Unknown]
  - Vulvovaginal erythema [Unknown]
  - Genital infection fungal [Unknown]

NARRATIVE: CASE EVENT DATE: 2018
